FAERS Safety Report 7077223-9 (Version None)
Quarter: 2010Q4

REPORT INFORMATION
  Report Type: 
  Country: None (occurrence: None)
  Receive Date: 20101101
  Receipt Date: 20101018
  Transmission Date: 20110411
  Serious: Yes (Hospitalization)
  Sender: FDA-Public Use
  Company Number: US-ELI_LILLY_AND_COMPANY-US201010004396

PATIENT
  Age: 77 Year
  Sex: Male

DRUGS (3)
  1. GEMCITABINE HCL [Suspect]
     Indication: ADENOCARCINOMA PANCREAS
     Dosage: 2804 MG, OTHER (ON DAY 8 OF A 21 DAY CYCLE)
     Route: 042
     Dates: start: 20100728
  2. OTHER PHARMA COMPANY INV DRUG [Suspect]
     Indication: ADENOCARCINOMA PANCREAS
     Dosage: 576 MG, OTHER (ON DAY ONE AND NINE OF A 21 DAY CYCLE)
     Route: 042
     Dates: start: 20100728
  3. METRONIDAZOLE [Concomitant]
     Indication: ENTEROBACTER BACTERAEMIA
     Route: 042
     Dates: start: 20100929

REACTIONS (5)
  - ENTEROBACTER BACTERAEMIA [None]
  - FATIGUE [None]
  - HYPOCALCAEMIA [None]
  - LYMPHOCYTE COUNT DECREASED [None]
  - MUSCULAR WEAKNESS [None]
